FAERS Safety Report 5569619-9 (Version None)
Quarter: 2007Q4

REPORT INFORMATION
  Report Type: 
  Country: None (occurrence: None)
  Receive Date: 20071218
  Receipt Date: 20071129
  Transmission Date: 20080405
  Serious: Yes (Other)
  Sender: FDA-Public Use
  Company Number: DSA_29314_2007

PATIENT
  Age: 35 Year
  Sex: Male

DRUGS (5)
  1. LORAZEPAM [Suspect]
     Indication: PSYCHOTIC DISORDER
     Dosage: 1 MG QD ORAL, ORAL, 1 MG TID ORAL, DF ORAL
     Route: 048
     Dates: start: 20070101, end: 20070101
  2. LORAZEPAM [Suspect]
     Indication: PSYCHOTIC DISORDER
     Dosage: 1 MG QD ORAL, ORAL, 1 MG TID ORAL, DF ORAL
     Route: 048
     Dates: start: 20050101
  3. LORAZEPAM [Suspect]
     Indication: PSYCHOTIC DISORDER
     Dosage: 1 MG QD ORAL, ORAL, 1 MG TID ORAL, DF ORAL
     Route: 048
     Dates: start: 20070101
  4. LORAZEPAM [Suspect]
     Indication: PSYCHOTIC DISORDER
     Dosage: 1 MG QD ORAL, ORAL, 1 MG TID ORAL, DF ORAL
     Route: 048
     Dates: start: 20070101
  5. ZYPREXA [Suspect]
     Indication: DRUG USE FOR UNKNOWN INDICATION
     Dosage: ORAL
     Route: 048

REACTIONS (5)
  - CONDITION AGGRAVATED [None]
  - DRUG DEPENDENCE [None]
  - DRUG INTERACTION [None]
  - GENERAL PHYSICAL HEALTH DETERIORATION [None]
  - PSYCHOTIC DISORDER [None]
